FAERS Safety Report 10056819 (Version 3)
Quarter: 2014Q2

REPORT INFORMATION
  Report Type: Spontaneous
  Country: DE (occurrence: DE)
  Receive Date: 20140403
  Receipt Date: 20140627
  Transmission Date: 20141212
  Serious: Yes (Other)
  Sender: FDA-Public Use
  Company Number: DE-INCYTE CORPORATION-2014IN000787

PATIENT
  Age: 74 Year
  Sex: Female

DRUGS (4)
  1. ALLOPURINOL [Concomitant]
     Indication: HYPERURICAEMIA
     Dosage: 300 MG/DAY
     Route: 048
     Dates: start: 20120228
  2. JAKAVI [Suspect]
     Indication: MYELOPROLIFERATIVE DISORDER
     Dosage: 5 MG
     Route: 048
     Dates: start: 20121101, end: 20130925
  3. JAKAVI [Suspect]
     Indication: MYELOPROLIFERATIVE DISORDER
     Dosage: 5 MG, DAILY
     Route: 048
     Dates: start: 20121101, end: 20130925
  4. JAKAVI [Suspect]
     Dosage: 5 MG, EVERY 2ND DAY
     Route: 065
     Dates: start: 20120926

REACTIONS (5)
  - White blood cell count increased [Unknown]
  - Platelet count increased [Unknown]
  - Anaemia [Recovering/Resolving]
  - Platelet count decreased [Not Recovered/Not Resolved]
  - Haemoglobin decreased [Not Recovered/Not Resolved]
